FAERS Safety Report 5251049-0 (Version None)
Quarter: 2007Q1

REPORT INFORMATION
  Report Type: 
  Country: None (occurrence: None)
  Receive Date: 20070228
  Receipt Date: 20060825
  Transmission Date: 20070707
  Serious: Yes (Hospitalization, Other)
  Sender: FDA-Public Use
  Company Number: US-GLAXOSMITHKLINE-A0616939A

PATIENT
  Age: 26 Year
  Sex: Female
  Weight: 56.8 kg

DRUGS (3)
  1. LAMICTAL [Suspect]
     Indication: BIPOLAR DISORDER
     Route: 048
     Dates: start: 20060713, end: 20060801
  2. SEROQUEL [Concomitant]
     Dosage: 100MG AT NIGHT
  3. KLONOPIN [Concomitant]
     Dosage: .5MG AS REQUIRED

REACTIONS (2)
  - RASH [None]
  - STEVENS-JOHNSON SYNDROME [None]
